FAERS Safety Report 25489393 (Version 2)
Quarter: 2025Q3

REPORT INFORMATION
  Report Type: Spontaneous
  Country: JP (occurrence: JP)
  Receive Date: 20250627
  Receipt Date: 20250801
  Transmission Date: 20251020
  Serious: Yes (Hospitalization, Other)
  Sender: OTSUKA
  Company Number: JP-MMM-Otsuka-68LQ3FOW

PATIENT
  Age: 81 Year
  Sex: Male

DRUGS (4)
  1. REXULTI [Suspect]
     Active Substance: BREXPIPRAZOLE
     Indication: Dementia Alzheimer^s type
     Dosage: 1 MG/DAY
     Route: 048
     Dates: start: 20250318, end: 20250409
  2. REXULTI [Suspect]
     Active Substance: BREXPIPRAZOLE
     Indication: Irritability
  3. REXULTI [Suspect]
     Active Substance: BREXPIPRAZOLE
     Indication: Dementia Alzheimer^s type
     Dosage: 0.5 MG/DAY
     Route: 048
     Dates: start: 20250303, end: 20250317
  4. REXULTI [Suspect]
     Active Substance: BREXPIPRAZOLE
     Indication: Irritability

REACTIONS (3)
  - Urinary retention [Recovered/Resolved]
  - Urethral injury [Recovered/Resolved]
  - Haematuria [Recovered/Resolved]

NARRATIVE: CASE EVENT DATE: 20250409
